FAERS Safety Report 9308032 (Version 1)
Quarter: 2013Q2

REPORT INFORMATION
  Report Type: Spontaneous
  Country: US (occurrence: US)
  Receive Date: 20130524
  Receipt Date: 20130524
  Transmission Date: 20140414
  Serious: No
  Sender: FDA-Public Use
  Company Number: US-GLAXOSMITHKLINE-A1015807A

PATIENT
  Sex: Female

DRUGS (2)
  1. BACTROBAN [Suspect]
     Indication: MULTIPLE ALLERGIES
     Route: 045
     Dates: start: 2010
  2. LASIX [Concomitant]

REACTIONS (3)
  - Nasal discomfort [Not Recovered/Not Resolved]
  - Skin exfoliation [Unknown]
  - Hypersensitivity [Unknown]
